FAERS Safety Report 12309350 (Version 1)
Quarter: 2016Q2

REPORT INFORMATION
  Report Type: Spontaneous
  Country: US (occurrence: None)
  Receive Date: 20160426
  Receipt Date: 20160426
  Transmission Date: 20160815
  Serious: Yes (Disabling)
  Sender: FDA-Public Use
  Company Number: None

PATIENT
  Age: 46 Year
  Sex: Female
  Weight: 49.9 kg

DRUGS (1)
  1. FLUOROURACIL, 5% MILAN [Suspect]
     Active Substance: FLUOROURACIL
     Indication: NEOPLASM MALIGNANT
     Dosage: 40 TOPICAL CREAM TWICE A DAY APPLIED TO A SURFACE,  USUALLY THE SKIN
     Route: 061
     Dates: start: 20160210, end: 20160223

REACTIONS (10)
  - Scab [None]
  - Mouth ulceration [None]
  - Hyperhidrosis [None]
  - Skin hyperpigmentation [None]
  - Salivary gland disorder [None]
  - Fungal infection [None]
  - Dry mouth [None]
  - Oral candidiasis [None]
  - Scar [None]
  - Glossitis [None]

NARRATIVE: CASE EVENT DATE: 20160223
